FAERS Safety Report 17764562 (Version 1)
Quarter: 2020Q2

REPORT INFORMATION
  Report Type: Spontaneous
  Country: PT (occurrence: PT)
  Receive Date: 20200511
  Receipt Date: 20200511
  Transmission Date: 20200714
  Serious: Yes (Disabling, Other)
  Sender: FDA-Public Use
  Company Number: PT-SA-2020SA119820

PATIENT
  Age: 45 Year
  Sex: Male
  Weight: 76 kg

DRUGS (3)
  1. FLUOROURACIL. [Suspect]
     Active Substance: FLUOROURACIL
     Indication: COLON CANCER
     Dosage: 5460 MG, QCY (780 MG BOLUS AND 4680MG INFUSION 46 HOURS)
     Route: 042
     Dates: start: 20200408, end: 20200409
  2. OXALIPLATIN. [Suspect]
     Active Substance: OXALIPLATIN
     Indication: COLON CANCER
     Dosage: 165 MG, QCY
     Route: 042
     Dates: start: 20200408, end: 20200408
  3. LEVOLEUCOVORIN DISODIUM [Concomitant]
     Active Substance: LEVOLEUCOVORIN DISODIUM

REACTIONS (1)
  - Hepatotoxicity [Recovering/Resolving]

NARRATIVE: CASE EVENT DATE: 20200422
